FAERS Safety Report 22019621 (Version 2)
Quarter: 2023Q1

REPORT INFORMATION
  Report Type: Spontaneous
  Country: FR (occurrence: FR)
  Receive Date: 20230222
  Receipt Date: 20230228
  Transmission Date: 20230418
  Serious: Yes (Hospitalization, Other)
  Sender: FDA-Public Use
  Company Number: FR-AFSSAPS-NC2023000178

PATIENT
  Age: 88 Year
  Sex: Female
  Weight: 53.4 kg

DRUGS (16)
  1. GEMCITABINE [Suspect]
     Active Substance: GEMCITABINE
     Indication: Renal cancer
     Dosage: 1264 MILLIGRAM
     Route: 042
     Dates: start: 20221212, end: 20221212
  2. GEMCITABINE [Suspect]
     Active Substance: GEMCITABINE
     Dosage: 1272 MILLIGRAM
     Route: 042
     Dates: start: 20230123, end: 20230123
  3. GEMCITABINE [Suspect]
     Active Substance: GEMCITABINE
     Dosage: 1248 MILLIGRAM
     Route: 042
     Dates: start: 20230109, end: 20230109
  4. GEMCITABINE [Suspect]
     Active Substance: GEMCITABINE
     Dosage: 1256 MILLIGRAM
     Route: 042
     Dates: start: 20221219, end: 20221219
  5. GEMCITABINE [Suspect]
     Active Substance: GEMCITABINE
     Dosage: 1264 MILLIGRAM
     Route: 042
     Dates: start: 20221128, end: 20221128
  6. GEMCITABINE [Suspect]
     Active Substance: GEMCITABINE
     Dosage: 1264 MILLIGRAM
     Route: 042
     Dates: start: 20221118, end: 20221118
  7. GEMCITABINE [Suspect]
     Active Substance: GEMCITABINE
     Dosage: 1248 MILLIGRAM
     Route: 042
     Dates: start: 20230102, end: 20230102
  8. GEMCITABINE [Suspect]
     Active Substance: GEMCITABINE
     Dosage: 1272 MILLIGRAM
     Route: 042
     Dates: start: 20230130, end: 20230130
  9. CARBOPLATIN [Suspect]
     Active Substance: CARBOPLATIN
     Indication: Renal cancer
     Dosage: 126.5 MILLIGRAM
     Route: 042
     Dates: start: 20221118, end: 20221118
  10. CARBOPLATIN [Suspect]
     Active Substance: CARBOPLATIN
     Dosage: 136.5 MILLIGRAM
     Route: 042
     Dates: start: 20221212, end: 20221212
  11. CARBOPLATIN [Suspect]
     Active Substance: CARBOPLATIN
     Dosage: 132 MILLIGRAM
     Route: 042
     Dates: start: 20230130, end: 20230130
  12. CARBOPLATIN [Suspect]
     Active Substance: CARBOPLATIN
     Dosage: 130 MILLIGRAM
     Route: 042
     Dates: start: 20230123, end: 20230123
  13. CARBOPLATIN [Suspect]
     Active Substance: CARBOPLATIN
     Dosage: 122.5 MILLIGRAM
     Route: 042
     Dates: start: 20221219, end: 20221219
  14. CARBOPLATIN [Suspect]
     Active Substance: CARBOPLATIN
     Dosage: 121.5 MILLIGRAM
     Route: 042
     Dates: start: 20230102, end: 20230102
  15. CARBOPLATIN [Suspect]
     Active Substance: CARBOPLATIN
     Dosage: 132 MILLIGRAM
     Route: 042
     Dates: start: 20221128, end: 20221128
  16. CARBOPLATIN [Suspect]
     Active Substance: CARBOPLATIN
     Dosage: 140 MILLIGRAM
     Route: 042
     Dates: start: 20230109, end: 20230109

REACTIONS (1)
  - Ischaemic stroke [Not Recovered/Not Resolved]

NARRATIVE: CASE EVENT DATE: 20230131
